FAERS Safety Report 6419419-2 (Version None)
Quarter: 2009Q4

REPORT INFORMATION
  Report Type: 
  Country: None (occurrence: None)
  Receive Date: 20091027
  Receipt Date: 20091016
  Transmission Date: 20100525
  Serious: Yes (Other)
  Sender: FDA-Public Use
  Company Number: 2009JP006341

PATIENT
  Age: 57 Year

DRUGS (9)
  1. PROGRAF [Suspect]
     Dosage: ORAL
     Route: 048
  2. PARIET (RABEPRAZLE SODIUM) [Concomitant]
  3. URSODIOL [Concomitant]
  4. ITRACONAZOLE [Concomitant]
  5. EXJADE [Concomitant]
  6. WARFARIN SODIUM [Concomitant]
  7. ASTRIC (ACICLOVIR) [Concomitant]
  8. SULFAMETHOXAZOLE AND TRIMETHOPRIM [Concomitant]
  9. PREDNISOLONE [Concomitant]

REACTIONS (2)
  - CHRONIC GRAFT VERSUS HOST DISEASE [None]
  - CORNEAL EROSION [None]
